FAERS Safety Report 11922262 (Version 1)
Quarter: 2016Q1

REPORT INFORMATION
  Report Type: Report from Study
  Country: US (occurrence: US)
  Receive Date: 20160115
  Receipt Date: 20160115
  Transmission Date: 20160526
  Serious: Yes (Life-Threatening, Hospitalization, Other)
  Sender: FDA-Public Use
  Company Number: US-ASTELLAS-2014US019534

PATIENT
  Age: 84 Year
  Sex: Female

DRUGS (5)
  1. ERLOTINIB [Suspect]
     Active Substance: ERLOTINIB
     Route: 048
     Dates: end: 20150827
  2. ERLOTINIB [Suspect]
     Active Substance: ERLOTINIB
     Route: 048
     Dates: start: 201501
  3. ERLOTINIB [Suspect]
     Active Substance: ERLOTINIB
     Dosage: UNK UNK, UNKNOWN FREQ.
     Route: 065
     Dates: start: 20141129, end: 201412
  4. ERLOTINIB [Suspect]
     Active Substance: ERLOTINIB
     Indication: NON-SMALL CELL LUNG CANCER
     Route: 048
     Dates: start: 201207
  5. ERLOTINIB [Suspect]
     Active Substance: ERLOTINIB
     Route: 048
     Dates: start: 2013

REACTIONS (22)
  - Affect lability [Not Recovered/Not Resolved]
  - Insomnia [Not Recovered/Not Resolved]
  - Hair texture abnormal [Not Recovered/Not Resolved]
  - Trichiasis [Not Recovered/Not Resolved]
  - Rash [Not Recovered/Not Resolved]
  - Fatigue [Not Recovered/Not Resolved]
  - Renal disorder [Recovering/Resolving]
  - Constipation [Not Recovered/Not Resolved]
  - Ulcer [Unknown]
  - Dermatitis diaper [Recovering/Resolving]
  - Fungal infection [Recovering/Resolving]
  - Skin exfoliation [Not Recovered/Not Resolved]
  - Asthenia [Not Recovered/Not Resolved]
  - Renal failure [Recovered/Resolved]
  - Pain [Not Recovered/Not Resolved]
  - Pollakiuria [Unknown]
  - Pain in extremity [Not Recovered/Not Resolved]
  - Infection [Unknown]
  - Visual impairment [Unknown]
  - Eye pruritus [Unknown]
  - Diarrhoea [Recovering/Resolving]
  - Weight decreased [Recovered/Resolved]

NARRATIVE: CASE EVENT DATE: 2012
